FAERS Safety Report 19680119 (Version 1)
Quarter: 2021Q3

REPORT INFORMATION
  Report Type: Spontaneous
  Country: CA (occurrence: CA)
  Receive Date: 20210810
  Receipt Date: 20210810
  Transmission Date: 20211014
  Serious: Yes (Life-Threatening, Hospitalization)
  Sender: FDA-Public Use
  Company Number: CA-PFIZER INC-202100957406

PATIENT
  Age: 3 Year
  Sex: Male
  Weight: 20 kg

DRUGS (3)
  1. CYCLOPHOSPHAMIDE. [Suspect]
     Active Substance: CYCLOPHOSPHAMIDE
     Indication: NEUROBLASTOMA
  2. XALKORI [Suspect]
     Active Substance: CRIZOTINIB
     Indication: NEUROBLASTOMA
  3. TOPOTECAN HYDROCHLORIDE. [Suspect]
     Active Substance: TOPOTECAN HYDROCHLORIDE
     Indication: NEUROBLASTOMA

REACTIONS (2)
  - Off label use [Unknown]
  - Febrile neutropenia [Recovering/Resolving]
